FAERS Safety Report 22127213 (Version 2)
Quarter: 2023Q1

REPORT INFORMATION
  Report Type: Other
  Country: PK (occurrence: None)
  Receive Date: 20230322
  Receipt Date: 20230323
  Transmission Date: 20230417
  Serious: Yes (Death)
  Sender: FDA-Public Use
  Company Number: PK-ROCHE-3313679

PATIENT
  Age: 43 Year
  Sex: Male

DRUGS (1)
  1. RITUXIMAB [Suspect]
     Active Substance: RITUXIMAB
     Indication: Diffuse large B-cell lymphoma
     Dosage: HCP PRESCRIBED RISTOVA FOR 4 CYCLES WITH INTERVAL 3 WEEKLY
     Route: 041
     Dates: start: 20220607

REACTIONS (1)
  - Death [Fatal]
